FAERS Safety Report 7135765-1 (Version None)
Quarter: 2010Q4

REPORT INFORMATION
  Report Type: 
  Country: None (occurrence: None)
  Receive Date: 20101203
  Receipt Date: 20101123
  Transmission Date: 20110411
  Serious: Yes (Hospitalization, Disabling, Other)
  Sender: FDA-Public Use
  Company Number: FR-ABBOTT-10P-056-0686529-00

PATIENT
  Sex: Male
  Weight: 65 kg

DRUGS (2)
  1. HUMIRA [Suspect]
     Indication: CROHN'S DISEASE
     Route: 058
     Dates: start: 20100510, end: 20100701
  2. HUMIRA [Suspect]

REACTIONS (8)
  - ANOSOGNOSIA [None]
  - APRAXIA [None]
  - BRONCHITIS [None]
  - HAEMORRHAGIC STROKE [None]
  - HEMIPARESIS [None]
  - HEMISENSORY NEGLECT [None]
  - IMPAIRED SELF-CARE [None]
  - LUNG INFECTION [None]
